FAERS Safety Report 8591824-8 (Version None)
Quarter: 2012Q3

REPORT INFORMATION
  Report Type: 
  Country: None (occurrence: None)
  Receive Date: 20120803
  Receipt Date: 20120803
  Transmission Date: 20120928
  Serious: Yes (Other)
  Sender: FDA-Public Use
  Company Number: None

PATIENT
  Age: 45 Year
  Sex: Female

DRUGS (2)
  1. LITHIUM CARBONATE [Suspect]
     Indication: BIPOLAR DISORDER
     Dosage: 450MG TWICE DAILY PO
     Route: 048
  2. LITHIUM CARBONATE [Suspect]
     Indication: BIPOLAR I DISORDER
     Dosage: 450MG TWICE DAILY PO
     Route: 048

REACTIONS (1)
  - THYROID DISORDER [None]
